FAERS Safety Report 5097715-1 (Version None)
Quarter: 2006Q3

REPORT INFORMATION
  Report Type: 
  Country: None (occurrence: None)
  Receive Date: 20060901
  Receipt Date: 20060815
  Transmission Date: 20061208
  Serious: Yes (Hospitalization)
  Sender: FDA-Public Use
  Company Number: US200608004259

PATIENT
  Age: 62 Year
  Sex: Male
  Weight: 88.4 kg

DRUGS (3)
  1. ZYPREXA [Suspect]
     Indication: DEPRESSION
     Dosage: 2.5 MG, ORAL
     Route: 048
     Dates: start: 20011001, end: 20020301
  2. DESIPRAMINE HCL [Concomitant]
  3. TRAZODONE HCL [Concomitant]

REACTIONS (4)
  - CATHETERISATION CARDIAC [None]
  - CONDITION AGGRAVATED [None]
  - DIABETES MELLITUS [None]
  - VISION BLURRED [None]
